FAERS Safety Report 5897210-3 (Version None)
Quarter: 2008Q3

REPORT INFORMATION
  Report Type: 
  Country: None (occurrence: None)
  Receive Date: 20080923
  Receipt Date: 20080908
  Transmission Date: 20090109
  Serious: Yes (Death, Other)
  Sender: FDA-Public Use
  Company Number: KADN20080334

PATIENT
  Age: 19 Year
  Sex: Male

DRUGS (2)
  1. MORPHINE [Suspect]
     Dates: end: 20050101
  2. ALPRAZOLAM [Suspect]
     Dates: end: 20050101

REACTIONS (1)
  - CARDIO-RESPIRATORY ARREST [None]
